FAERS Safety Report 17010858 (Version 1)
Quarter: 2019Q4

REPORT INFORMATION
  Report Type: Spontaneous
  Country: US (occurrence: US)
  Receive Date: 20191001
  Receipt Date: 20191001
  Transmission Date: 20200122
  Serious: Yes (Disabling)
  Sender: FDA-Public Use
  Company Number: None

PATIENT
  Age: 80 Year
  Sex: Female
  Weight: 66.68 kg

DRUGS (5)
  1. HYDROXYZINE HCL [Concomitant]
     Active Substance: HYDROXYZINE HYDROCHLORIDE
  2. LISINOPRIL. [Suspect]
     Active Substance: LISINOPRIL
     Indication: HYPERTENSION
     Dosage: ?          QUANTITY:1 PILL;?
     Route: 048
     Dates: start: 20190607, end: 20190806
  3. LOSARTAN. [Concomitant]
     Active Substance: LOSARTAN
  4. METOPROLOL. [Concomitant]
     Active Substance: METOPROLOL
  5. CHLORTHALIDONE. [Suspect]
     Active Substance: CHLORTHALIDONE

REACTIONS (7)
  - Wheezing [None]
  - Pruritus [None]
  - Sneezing [None]
  - Rash [None]
  - Upper-airway cough syndrome [None]
  - Cough [None]
  - Skin discolouration [None]

NARRATIVE: CASE EVENT DATE: 20190713
